FAERS Safety Report 12917995 (Version 1)
Quarter: 2016Q4

REPORT INFORMATION
  Report Type: Spontaneous
  Country: US (occurrence: US)
  Receive Date: 20161107
  Receipt Date: 20161107
  Transmission Date: 20170207
  Serious: No
  Sender: FDA-Public Use
  Company Number: US-ALLERGAN-1648816

PATIENT
  Sex: Male
  Weight: 65.76 kg

DRUGS (1)
  1. SILODOSIN UNK [Suspect]
     Active Substance: SILODOSIN
     Indication: PROSTATIC SPECIFIC ANTIGEN INCREASED
     Dosage: 8 MG, DAILY
     Route: 048
     Dates: start: 2014

REACTIONS (1)
  - Somnolence [Recovered/Resolved]
